FAERS Safety Report 25606503 (Version 1)
Quarter: 2025Q3

REPORT INFORMATION
  Report Type: Spontaneous
  Country: US (occurrence: None)
  Receive Date: 20250724
  Receipt Date: 20250724
  Transmission Date: 20251021
  Serious: Yes (Life-Threatening, Hospitalization)
  Sender: FDA-CTU
  Company Number: None

PATIENT
  Age: 17 Month
  Sex: Female
  Weight: 14.31 kg

DRUGS (2)
  1. DEXTROAMPHETAMINE SACCHARATE, AMPHETAMINE ASPARTATE, DEXTROAMPHETAMINE [Suspect]
     Active Substance: AMPHETAMINE ASPARTATE\AMPHETAMINE SULFATE\DEXTROAMPHETAMINE SACCHARATE\DEXTROAMPHETAMINE SULFATE
     Indication: Product used for unknown indication
     Dosage: 1 CAPSULE DAILY ORAL
     Route: 048
  2. DEVICE [Suspect]
     Active Substance: DEVICE

REACTIONS (3)
  - Product closure issue [None]
  - Accidental exposure to product [None]
  - Accidental overdose [None]

NARRATIVE: CASE EVENT DATE: 20250722
